FAERS Safety Report 22590561 (Version 1)
Quarter: 2023Q2

REPORT INFORMATION
  Report Type: Report from Study
  Country: NL (occurrence: NL)
  Receive Date: 20230612
  Receipt Date: 20230612
  Transmission Date: 20230721
  Serious: Yes (Hospitalization)
  Sender: FDA-Public Use
  Company Number: NL-BAYER-2023A074314

PATIENT
  Age: 36 Year
  Sex: Male

DRUGS (1)
  1. ADEMPAS [Suspect]
     Active Substance: RIOCIGUAT
     Indication: Pulmonary arterial hypertension
     Dosage: 1 DF, TID
     Route: 048
     Dates: start: 20230423, end: 20230509

REACTIONS (2)
  - Fluid retention [Not Recovered/Not Resolved]
  - Fluid retention [None]

NARRATIVE: CASE EVENT DATE: 20230430
